FAERS Safety Report 20676044 (Version 1)
Quarter: 2022Q2

REPORT INFORMATION
  Report Type: Spontaneous
  Country: US (occurrence: US)
  Receive Date: 20220405
  Receipt Date: 20220405
  Transmission Date: 20220720
  Serious: No
  Sender: FDA-Public Use
  Company Number: US-PFIZER INC-202101136735

PATIENT
  Age: 69 Year
  Sex: Female
  Weight: 66.68 kg

DRUGS (1)
  1. IBRANCE [Suspect]
     Active Substance: PALBOCICLIB
     Dosage: UNK
     Dates: start: 201910

REACTIONS (7)
  - Skin atrophy [Unknown]
  - Contusion [Unknown]
  - Limb discomfort [Unknown]
  - Dysphonia [Unknown]
  - Nasopharyngitis [Unknown]
  - Infection [Unknown]
  - Off label use [Unknown]
